FAERS Safety Report 18769436 (Version 4)
Quarter: 2021Q2

REPORT INFORMATION
  Report Type: Spontaneous
  Country: US (occurrence: US)
  Receive Date: 20210121
  Receipt Date: 20210617
  Transmission Date: 20210717
  Serious: No
  Sender: FDA-Public Use
  Company Number: US-GLAXOSMITHKLINE-US2021AMR008935

PATIENT
  Age: 76 Year
  Sex: Female

DRUGS (5)
  1. ZEJULA [Suspect]
     Active Substance: NIRAPARIB
     Dosage: 300 MG, QD
     Dates: start: 20210106
  2. ZEJULA [Suspect]
     Active Substance: NIRAPARIB
     Indication: OVARIAN CANCER
     Dosage: UNK
     Dates: start: 2020
  3. ZEJULA [Suspect]
     Active Substance: NIRAPARIB
     Dosage: 300 MG, QD
  4. ZEJULA [Suspect]
     Active Substance: NIRAPARIB
     Dosage: 300 MG, QD
     Dates: start: 2021
  5. ZEJULA [Suspect]
     Active Substance: NIRAPARIB
     Dosage: 300 MG, QD
     Route: 048

REACTIONS (14)
  - Surgery [Unknown]
  - Eructation [Unknown]
  - Fatigue [Unknown]
  - Nausea [Unknown]
  - Product dose omission issue [Unknown]
  - Hypertension [Recovering/Resolving]
  - Vomiting [Unknown]
  - Dizziness [Unknown]
  - Asthenia [Unknown]
  - Blood glucose increased [Recovering/Resolving]
  - Insomnia [Unknown]
  - Red blood cell count decreased [Not Recovered/Not Resolved]
  - Intentional product misuse [Unknown]
  - Heart rate irregular [Unknown]

NARRATIVE: CASE EVENT DATE: 20210112
